FAERS Safety Report 4936526-1 (Version None)
Quarter: 2006Q1

REPORT INFORMATION
  Report Type: 
  Country: None (occurrence: None)
  Receive Date: 20060307
  Receipt Date: 20060301
  Transmission Date: 20060701
  Serious: Yes (Hospitalization)
  Sender: FDA-Public Use
  Company Number: GB-MERCK-0603GBR00004

PATIENT
  Age: 60 Year
  Sex: Male
  Weight: 91 kg

DRUGS (6)
  1. ZETIA [Suspect]
     Indication: BLOOD CHOLESTEROL INCREASED
     Route: 048
     Dates: start: 20051120, end: 20051215
  2. ASPIRIN [Concomitant]
     Route: 048
  3. COZAAR [Concomitant]
     Route: 048
  4. ZOCOR [Concomitant]
     Route: 048
     Dates: end: 20051215
  5. RANITIDINE [Concomitant]
     Route: 048
  6. NEBIVOLOL [Concomitant]
     Route: 048

REACTIONS (1)
  - JAUNDICE CHOLESTATIC [None]
